FAERS Safety Report 9350290 (Version 2)
Quarter: 2013Q3

REPORT INFORMATION
  Report Type: Spontaneous
  Country: US (occurrence: US)
  Receive Date: 20130617
  Receipt Date: 20130821
  Transmission Date: 20140515
  Serious: Yes (Other)
  Sender: FDA-Public Use
  Company Number: US-SHIRE-ALL1-2013-03880

PATIENT
  Age: 10 Year
  Sex: Female

DRUGS (7)
  1. INTUNIV [Suspect]
     Indication: ATTENTION DEFICIT/HYPERACTIVITY DISORDER
     Dosage: 2 MG, 1X/DAY:QD
     Route: 048
     Dates: start: 201101
  2. VYVANSE [Suspect]
     Indication: ATTENTION DEFICIT/HYPERACTIVITY DISORDER
     Dosage: 30 MG, 1X/DAY:QD
     Route: 048
     Dates: start: 201304
  3. FISH OIL [Concomitant]
     Indication: ROUTINE HEALTH MAINTENANCE
     Dosage: 1000 MG, 1X/DAY:QD
     Route: 048
  4. ZOLOFT [Concomitant]
     Indication: IRRITABILITY
     Dosage: 25 MG, 2X/DAY:BID
     Route: 065
     Dates: start: 20121004
  5. ZOLOFT [Concomitant]
     Indication: SUICIDAL IDEATION
     Dosage: 50 MG, 1X/DAY:QD (IN THE MORNING)
     Dates: start: 201305
  6. ZOLOFT [Concomitant]
     Indication: HOMICIDAL IDEATION
     Dosage: 25 MG, 1X/DAY:QD (IN THE EVENING)
     Route: 048
     Dates: start: 201305
  7. ZOLOFT [Concomitant]
     Indication: ANXIETY
     Dosage: UNK, UNKNOWN
     Route: 065
     Dates: end: 201305

REACTIONS (5)
  - Suicidal ideation [Recovered/Resolved]
  - Homicidal ideation [Recovered/Resolved]
  - Emotional distress [Not Recovered/Not Resolved]
  - Weight decreased [Unknown]
  - Irritability [Not Recovered/Not Resolved]
